FAERS Safety Report 15185792 (Version 2)
Quarter: 2018Q3

REPORT INFORMATION
  Report Type: Spontaneous
  Country: US (occurrence: US)
  Receive Date: 20180723
  Receipt Date: 20180917
  Transmission Date: 20181010
  Serious: No
  Sender: FDA-Public Use
  Company Number: US-ASCENT PHARMACEUTICALS, INC.-2052616

PATIENT
  Age: 73 Year
  Sex: Male
  Weight: 80.91 kg

DRUGS (1)
  1. OXYCODONE AND ACETAMINOPHEN [Suspect]
     Active Substance: ACETAMINOPHEN\OXYCODONE HYDROCHLORIDE
     Indication: PAIN
     Route: 048

REACTIONS (5)
  - Nausea [Unknown]
  - Atrial fibrillation [Unknown]
  - Cortisol increased [Unknown]
  - Headache [Unknown]
  - Drug ineffective [Unknown]
